FAERS Safety Report 21321900 (Version 1)
Quarter: 2022Q3

REPORT INFORMATION
  Report Type: Spontaneous
  Country: US (occurrence: US)
  Receive Date: 20220912
  Receipt Date: 20220912
  Transmission Date: 20221027
  Serious: No
  Sender: FDA-Public Use
  Company Number: US-ALLERGAN-2139423US

PATIENT
  Sex: Male

DRUGS (3)
  1. ANDRODERM [Interacting]
     Active Substance: TESTOSTERONE
     Indication: Blood testosterone decreased
     Dosage: 4 MG
  2. AQUAPHOR HEALING [Interacting]
     Active Substance: PETROLATUM
     Indication: Application site erythema
     Dosage: UNK
  3. AQUAPHOR HEALING [Interacting]
     Active Substance: PETROLATUM
     Indication: Application site urticaria

REACTIONS (5)
  - General physical condition abnormal [Recovered/Resolved]
  - Application site urticaria [Recovered/Resolved]
  - Drug interaction [Unknown]
  - Application site erythema [Recovered/Resolved]
  - Drug ineffective [Unknown]
